FAERS Safety Report 10194995 (Version 1)
Quarter: 2014Q2

REPORT INFORMATION
  Report Type: Spontaneous
  Country: US (occurrence: US)
  Receive Date: 20140526
  Receipt Date: 20140526
  Transmission Date: 20141212
  Serious: No
  Sender: FDA-Public Use
  Company Number: US-PFIZER INC-2014142259

PATIENT
  Sex: Male

DRUGS (7)
  1. GLIPIZIDE XL [Suspect]
     Indication: TYPE 2 DIABETES MELLITUS
     Dosage: 10 MG, 2X/DAY
     Route: 048
     Dates: start: 2013
  2. CLONIDINE [Concomitant]
     Dosage: 0.3 MG, 3X/DAY
  3. DOXAZOSIN [Concomitant]
     Dosage: 4 MG, DAILY
  4. FINASTERIDE [Concomitant]
     Indication: BENIGN PROSTATIC HYPERPLASIA
     Dosage: 5 MG, DAILY
  5. FLUOXETINE [Concomitant]
     Dosage: 20 MG, DAILY
  6. LISINOPRIL [Concomitant]
     Indication: BLOOD PRESSURE ABNORMAL
     Dosage: 20 MG, DAILY
  7. RAPAFLO [Concomitant]
     Indication: BENIGN PROSTATIC HYPERPLASIA
     Dosage: 8 MG, DAILY

REACTIONS (1)
  - Drug ineffective [Unknown]
